FAERS Safety Report 19667858 (Version 3)
Quarter: 2021Q4

REPORT INFORMATION
  Report Type: Spontaneous
  Country: US (occurrence: US)
  Receive Date: 20210806
  Receipt Date: 20211018
  Transmission Date: 20220303
  Serious: Yes (Hospitalization)
  Sender: FDA-Public Use
  Company Number: US-AURINIA PHARMACEUTICALS INC.-AUR-000102

PATIENT
  Age: 45 Year
  Sex: Female
  Weight: 148.1 kg

DRUGS (6)
  1. LUPKYNIS [Suspect]
     Active Substance: VOCLOSPORIN
     Indication: Lupus nephritis
     Dosage: 23.7 MILLIGRAM, BID (LOWER TO 15.8 MILLIGRAM BID)
     Route: 048
     Dates: start: 20210404, end: 20210511
  2. LUPKYNIS [Suspect]
     Active Substance: VOCLOSPORIN
     Dosage: 15.8 MILLIGRAM, BID
     Route: 048
     Dates: start: 20210511
  3. MYCOPHENOLATE MOFETIL [Suspect]
     Active Substance: MYCOPHENOLATE MOFETIL
     Indication: Lupus nephritis
     Dosage: 1000 MILLIGRAM, BID
  4. MYCOPHENOLATE MOFETIL [Suspect]
     Active Substance: MYCOPHENOLATE MOFETIL
     Dosage: 500 MILLIGRAM, BID
     Dates: start: 20210511
  5. HYDROXYCHLOROQUINE SULFATE [Concomitant]
     Active Substance: HYDROXYCHLOROQUINE SULFATE
     Indication: Lupus nephritis
     Dosage: 200 MILLIGRAM, BID
     Dates: start: 2017
  6. PRED [PREDNISOLONE] [Concomitant]
     Indication: Lupus nephritis
     Dosage: 10 MILLIGRAM, QD
     Dates: end: 202107

REACTIONS (5)
  - Neutropenia [Not Recovered/Not Resolved]
  - White blood cell count decreased [Not Recovered/Not Resolved]
  - Mucosal inflammation [Recovered/Resolved]
  - Nucleated red cells [Unknown]
  - Neutralising antibodies negative [Not Recovered/Not Resolved]

NARRATIVE: CASE EVENT DATE: 20210507
